FAERS Safety Report 8348173-2 (Version None)
Quarter: 2012Q2

REPORT INFORMATION
  Report Type: 
  Country: None (occurrence: None)
  Receive Date: 20120507
  Receipt Date: 20120426
  Transmission Date: 20120825
  Serious: Yes (Hospitalization)
  Sender: FDA-Public Use
  Company Number: 2012S1000401

PATIENT
  Age: 82 Year
  Sex: Female

DRUGS (10)
  1. ADALAT [Concomitant]
  2. LIVALO [Suspect]
     Indication: HYPERLIPIDAEMIA
     Dosage: 1 MG;1X;PO
     Route: 048
     Dates: start: 20081120, end: 20120311
  3. LASIX [Concomitant]
  4. MICARDIS [Concomitant]
  5. ASPIRIN [Concomitant]
  6. NORVASC [Concomitant]
  7. ALISKIREN [Concomitant]
  8. FUMARATE [Concomitant]
  9. MEILAX [Concomitant]
  10. PLETAL [Concomitant]

REACTIONS (3)
  - FALL [None]
  - CONTUSION [None]
  - RHABDOMYOLYSIS [None]
